FAERS Safety Report 5741106-4 (Version None)
Quarter: 2008Q2

REPORT INFORMATION
  Report Type: 
  Country: None (occurrence: None)
  Receive Date: 20080514
  Receipt Date: 20080502
  Transmission Date: 20081010
  Serious: Yes (Other)
  Sender: FDA-Public Use
  Company Number: 2008011605

PATIENT
  Age: 70 Year
  Sex: Male
  Weight: 68.0396 kg

DRUGS (2)
  1. LISTERINE WHITENING QUICK DISSOLVING STRIPS (NO ACTIVE INGREDIENT) [Suspect]
     Indication: DENTAL CARE
     Dosage: 2 STRIPS ONCE A DAY (1 IN 1 D), ORAL
     Route: 048
     Dates: start: 20080101, end: 20080428
  2. INSULIN (INSULIN) [Concomitant]

REACTIONS (3)
  - CAUSTIC INJURY [None]
  - LIP BLISTER [None]
  - LIP PAIN [None]
